FAERS Safety Report 5977685-1 (Version None)
Quarter: 2008Q4

REPORT INFORMATION
  Report Type: 
  Country: None (occurrence: None)
  Receive Date: 20081201
  Receipt Date: 20081201
  Transmission Date: 20090506
  Serious: Yes (Hospitalization)
  Sender: FDA-Public Use
  Company Number: None

PATIENT
  Age: 83 Year
  Sex: Female
  Weight: 79.3795 kg

DRUGS (2)
  1. TARCEVA [Suspect]
     Indication: LUNG NEOPLASM MALIGNANT
     Dosage: ONE TABLET DAILY
     Dates: start: 20080401, end: 20080705
  2. TARCEVA [Suspect]
     Indication: LUNG NEOPLASM MALIGNANT
     Dosage: ONE TABLET DAILY
     Dates: start: 20080801, end: 20080905

REACTIONS (3)
  - FUNGAL INFECTION [None]
  - IMMUNE SYSTEM DISORDER [None]
  - RASH [None]
